FAERS Safety Report 24231127 (Version 2)
Quarter: 2024Q3

REPORT INFORMATION
  Report Type: Spontaneous
  Country: CN (occurrence: CN)
  Receive Date: 20240821
  Receipt Date: 20240823
  Transmission Date: 20241017
  Serious: Yes (Hospitalization, Other)
  Sender: NOVARTIS
  Company Number: CN-002147023-NVSC2024CN168302

PATIENT
  Age: 62 Year
  Sex: Male

DRUGS (3)
  1. LEQVIO [Suspect]
     Active Substance: INCLISIRAN SODIUM
     Indication: Hypercholesterolaemia
     Dosage: 284 MG (INJECTION)
     Route: 058
     Dates: start: 20240816
  2. LEQVIO [Suspect]
     Active Substance: INCLISIRAN SODIUM
     Indication: Diabetes mellitus
  3. LEQVIO [Suspect]
     Active Substance: INCLISIRAN SODIUM
     Indication: Hypertension

REACTIONS (7)
  - Syncope [Recovered/Resolved]
  - Hypotension [Recovered/Resolved]
  - Body temperature abnormal [Recovered/Resolved]
  - Vision blurred [Recovered/Resolved]
  - Hyperhidrosis [Recovered/Resolved]
  - Pallor [Recovered/Resolved]
  - Gait inability [Recovered/Resolved]

NARRATIVE: CASE EVENT DATE: 20240816
